FAERS Safety Report 5570252-3 (Version None)
Quarter: 2007Q4

REPORT INFORMATION
  Report Type: 
  Country: None (occurrence: None)
  Receive Date: 20071220
  Receipt Date: 20071213
  Transmission Date: 20080405
  Serious: Yes (Disabling, Other)
  Sender: FDA-Public Use
  Company Number: BR-PFIZER INC-2007105755

PATIENT
  Sex: Female

DRUGS (3)
  1. DEPO-PROVERA SUSPENSION/INJ [Suspect]
     Indication: CONTRACEPTION
     Dates: start: 20040101, end: 20040101
  2. DEPO-PROVERA SUSPENSION/INJ [Suspect]
     Dates: start: 20070101, end: 20070101
  3. VITAMINS [Concomitant]

REACTIONS (2)
  - FRACTURE [None]
  - VISUAL ACUITY REDUCED [None]
